FAERS Safety Report 6386725-X (Version None)
Quarter: 2009Q4

REPORT INFORMATION
  Report Type: 
  Country: None (occurrence: None)
  Receive Date: 20091002
  Receipt Date: 20090926
  Transmission Date: 20100525
  Serious: No
  Sender: FDA-Public Use
  Company Number: US-B.I. PHARMACEUTICALS,INC./RIDGEFIELD-2009-BP-11373BP

PATIENT
  Sex: Female

DRUGS (1)
  1. ZANTAC 150 [Suspect]
     Indication: GASTRIC PH DECREASED
     Dosage: 150 MG
     Route: 048
     Dates: start: 20090901

REACTIONS (3)
  - ABDOMINAL PAIN UPPER [None]
  - DYSPNOEA [None]
  - OROPHARYNGEAL PAIN [None]
